FAERS Safety Report 15129666 (Version 4)
Quarter: 2018Q3

REPORT INFORMATION
  Report Type: Report from Study
  Country: GR (occurrence: GR)
  Receive Date: 20180711
  Receipt Date: 20180802
  Transmission Date: 20181010
  Serious: Yes (Death, Hospitalization)
  Sender: FDA-Public Use
  Company Number: GR-CELGENEUS-GRC-20180700571

PATIENT
  Age: 70 Year
  Sex: Male
  Weight: 109 kg

DRUGS (6)
  1. AZACITIDINE. [Suspect]
     Active Substance: AZACITIDINE
     Indication: ACUTE MYELOID LEUKAEMIA
     Route: 050
     Dates: start: 20180611
  2. MLN4924 [Suspect]
     Active Substance: PEVONEDISTAT
     Indication: ACUTE MYELOID LEUKAEMIA
     Route: 065
     Dates: start: 20180611
  3. AZACITIDINE. [Suspect]
     Active Substance: AZACITIDINE
     Route: 050
     Dates: start: 20180713, end: 20180716
  4. MLN4924 [Suspect]
     Active Substance: PEVONEDISTAT
     Route: 065
     Dates: start: 20180619
  5. AZACITIDINE. [Suspect]
     Active Substance: AZACITIDINE
     Route: 050
     Dates: start: 20180619
  6. MLN4924 [Suspect]
     Active Substance: PEVONEDISTAT
     Route: 065
     Dates: start: 20180713, end: 20180716

REACTIONS (6)
  - Anaemia [Recovering/Resolving]
  - Thrombocytopenia [Unknown]
  - Cardio-respiratory arrest [Fatal]
  - Anaemia [Unknown]
  - Leukocytosis [Recovering/Resolving]
  - Thrombocytopenia [Recovering/Resolving]

NARRATIVE: CASE EVENT DATE: 20180621
